FAERS Safety Report 8989381 (Version 1)
Quarter: 2012Q4

REPORT INFORMATION
  Report Type: 
  Country: US (occurrence: US)
  Receive Date: 20121227
  Receipt Date: 20121227
  Transmission Date: 20130627
  Serious: No
  Sender: FDA-Public Use
  Company Number: US-ASTRAZENECA-2012SE93622

PATIENT
  Age: 69 Year
  Sex: Female

DRUGS (4)
  1. ATENOLOL [Suspect]
     Indication: CARDIAC DISORDER
     Route: 048
  2. NEXIUM [Suspect]
     Indication: GASTROOESOPHAGEAL REFLUX DISEASE
     Route: 048
  3. GLYBURIDE [Concomitant]
     Indication: DIABETES MELLITUS
  4. METFORMIN [Concomitant]

REACTIONS (2)
  - Accident at work [Unknown]
  - Diabetes mellitus [Unknown]
